FAERS Safety Report 19820994 (Version 1)
Quarter: 2021Q3

REPORT INFORMATION
  Report Type: Spontaneous
  Country: US (occurrence: US)
  Receive Date: 20210913
  Receipt Date: 20210913
  Transmission Date: 20211014
  Serious: Yes (Other)
  Sender: FDA-Public Use
  Company Number: US-MYLANLABS-2021M1059822

PATIENT
  Age: 4 Year
  Sex: Male

DRUGS (8)
  1. METHIMAZOLE. [Concomitant]
     Active Substance: METHIMAZOLE
     Indication: HYPERTHYROIDISM
     Dosage: UNK
     Route: 065
  2. PHOSPHAS [Concomitant]
     Indication: HYPOPHOSPHATAEMIA
     Dosage: 55 MILLIGRAM/KILOGRAM, QD
     Route: 048
  3. CALCITRIOL. [Concomitant]
     Active Substance: CALCITRIOL
     Indication: HYPOPHOSPHATAEMIA
     Dosage: DOSE: 80NG/KG, 1DAY
     Route: 048
  4. LETROZOLE. [Concomitant]
     Active Substance: LETROZOLE
     Indication: PRECOCIOUS PUBERTY
     Dosage: UNK
     Route: 065
  5. OCTREOTIDE. [Concomitant]
     Active Substance: OCTREOTIDE
     Indication: BLOOD GROWTH HORMONE INCREASED
     Dosage: UNK
     Route: 065
  6. BICALUTAMIDE. [Concomitant]
     Active Substance: BICALUTAMIDE
     Indication: PRECOCIOUS PUBERTY
     Dosage: UNK
     Route: 065
  7. ZOLEDRONIC ACID [Suspect]
     Active Substance: ZOLEDRONIC ACID
     Indication: ALBRIGHT^S DISEASE
  8. ZOLEDRONIC ACID [Suspect]
     Active Substance: ZOLEDRONIC ACID
     Indication: FIBROUS DYSPLASIA OF BONE
     Dosage: INFUSION
     Route: 065

REACTIONS (1)
  - Fanconi syndrome acquired [Recovered/Resolved]
